FAERS Safety Report 5730577-5 (Version None)
Quarter: 2008Q2

REPORT INFORMATION
  Report Type: 
  Country: None (occurrence: None)
  Receive Date: 20080507
  Receipt Date: 20080502
  Transmission Date: 20081010
  Serious: Yes (Death, Hospitalization)
  Sender: FDA-Public Use
  Company Number: A0726077A

PATIENT
  Sex: Male

DRUGS (7)
  1. LAMICTAL [Suspect]
     Dosage: 25MG TWICE PER DAY
     Route: 048
     Dates: start: 20070501
  2. PHENOBARBITAL TAB [Concomitant]
  3. DESMOPRESSIN ACETATE [Concomitant]
  4. DETROL [Concomitant]
  5. LORATADINE [Concomitant]
  6. LEVOXYL [Concomitant]
  7. TEGRETOL [Concomitant]

REACTIONS (10)
  - BLOOD TEST [None]
  - CEREBRAL HAEMORRHAGE [None]
  - CEREBROVASCULAR ACCIDENT [None]
  - CONVULSION [None]
  - LEUKAEMIA [None]
  - PLATELET COUNT DECREASED [None]
  - RED BLOOD CELL COUNT DECREASED [None]
  - SKIN DISCOLOURATION [None]
  - SLEEP DISORDER [None]
  - WHITE BLOOD CELL COUNT DECREASED [None]
